FAERS Safety Report 6060510-0 (Version None)
Quarter: 2009Q1

REPORT INFORMATION
  Report Type: 
  Country: None (occurrence: None)
  Receive Date: 20090202
  Receipt Date: 20090122
  Transmission Date: 20090719
  Serious: Yes (Other)
  Sender: FDA-Public Use
  Company Number: US-BAYER-200822133NA

PATIENT
  Age: 66 Year
  Sex: Male

DRUGS (7)
  1. MAGNEVIST [Suspect]
     Indication: NUCLEAR MAGNETIC RESONANCE IMAGING
     Dates: start: 20010101, end: 20010101
  2. MAGNEVIST [Suspect]
     Dates: start: 20010101, end: 20010101
  3. MAGNEVIST [Suspect]
     Dates: start: 20010101, end: 20010101
  4. MAGNEVIST [Suspect]
     Dates: start: 20010101, end: 20010101
  5. MAGNEVIST [Suspect]
     Dates: start: 20010101, end: 20010101
  6. MAGNEVIST [Suspect]
     Dates: start: 20060101, end: 20060101
  7. MAGNEVIST [Suspect]
     Dates: start: 20070101, end: 20070101

REACTIONS (2)
  - NEPHROGENIC SYSTEMIC FIBROSIS [None]
  - SKIN DISORDER [None]
